FAERS Safety Report 21792142 (Version 1)
Quarter: 2022Q4

REPORT INFORMATION
  Report Type: Spontaneous
  Country: CA (occurrence: None)
  Receive Date: 20221229
  Receipt Date: 20221229
  Transmission Date: 20230113
  Serious: Yes (Death, Hospitalization)
  Sender: FDA-Public Use
  Company Number: CA-ROCHE-3252806

PATIENT
  Age: 30 Year
  Sex: Female

DRUGS (17)
  1. RITUXIMAB [Suspect]
     Active Substance: RITUXIMAB
     Indication: Systemic lupus erythematosus
     Route: 042
  2. RITUXIMAB [Suspect]
     Active Substance: RITUXIMAB
     Route: 042
  3. CIALIS [Concomitant]
     Active Substance: TADALAFIL
  4. DOMPERIDONE [Concomitant]
     Active Substance: DOMPERIDONE
  5. ESOMEPRAZOLE [Concomitant]
     Active Substance: ESOMEPRAZOLE
     Route: 065
  6. GRAVOL [Concomitant]
     Active Substance: DIMENHYDRINATE
  7. HYDROXYCHLOROQUINE [Concomitant]
     Active Substance: HYDROXYCHLOROQUINE
  8. HYDROXYCHLOROQUINE SULFATE [Concomitant]
     Active Substance: HYDROXYCHLOROQUINE SULFATE
  9. MIRENA [Concomitant]
     Active Substance: LEVONORGESTREL
     Dosage: INSERT (EXTENDEDRELEASE)
  10. MYCOPHENOLATE MOFETIL [Concomitant]
     Active Substance: MYCOPHENOLATE MOFETIL
     Indication: Vasculitis gastrointestinal
     Route: 048
  11. MYCOPHENOLATE MOFETIL [Concomitant]
     Active Substance: MYCOPHENOLATE MOFETIL
     Indication: Systemic lupus erythematosus
  12. NUVARING [Concomitant]
     Active Substance: ETHINYL ESTRADIOL\ETONOGESTREL
     Dosage: RING (SLOWRELEASE)
  13. PREDNISONE [Concomitant]
     Active Substance: PREDNISONE
  14. RITUXIMAB [Concomitant]
     Active Substance: RITUXIMAB
     Route: 041
  15. RUXIENCE [Concomitant]
     Active Substance: RITUXIMAB-PVVR
     Route: 042
  16. GINGER [Concomitant]
     Active Substance: GINGER
     Route: 048
  17. ZOFRAN [Concomitant]
     Active Substance: ONDANSETRON HYDROCHLORIDE

REACTIONS (1)
  - COVID-19 [Fatal]
